FAERS Safety Report 8440021-5 (Version None)
Quarter: 2012Q2

REPORT INFORMATION
  Report Type: 
  Country: None (occurrence: None)
  Receive Date: 20120608
  Receipt Date: 20120528
  Transmission Date: 20120825
  Serious: Yes (Hospitalization, Other)
  Sender: FDA-Public Use
  Company Number: AXC-2011-000537

PATIENT
  Age: 57 Year
  Sex: Male

DRUGS (12)
  1. OZAGREL /01030902/ OZAGREL SODIUM) UNKNOWN [Suspect]
     Indication: CEREBRAL INFARCTION
     Dosage: 160 MG, QD, INTRAVENOUS
     Route: 042
     Dates: start: 20111107, end: 20111111
  2. PHELLOBERIN A /01786401/ (BERBERINE HYDROCHLORIDE, GERANIUM THUNBERGIL [Concomitant]
  3. ELENTAL-P (NUTRIENTS NOS) [Concomitant]
  4. ASPARA K /00466902/ (ASPARTATE POTASSIUM) [Concomitant]
  5. DIAZEPAM [Concomitant]
  6. FOIPAN (CAMOSTAT MESILATE) [Concomitant]
  7. BERIZYM /00517401/ (ENZYMES NOS) [Concomitant]
  8. ALDACTONE [Concomitant]
  9. LANSOPRAZOLE [Concomitant]
  10. URSODEXOYCHOLIC ACID (URSODEOXYCHOLIC ACID) TABLET, 100MG [Suspect]
     Indication: ALCOHOLIC LIVER DISEASE
     Dosage: 400 MG, QD, ORAL
     Route: 048
     Dates: start: 20111021, end: 20111111
  11. LASIX [Concomitant]
  12. PLAVIX [Suspect]
     Indication: CEREBRAL INFARCTION
     Dosage: 75 MG, QD, ORAL
     Route: 048
     Dates: start: 20111107, end: 20111111

REACTIONS (9)
  - OEDEMA PERIPHERAL [None]
  - DIARRHOEA [None]
  - HYPOKALAEMIA [None]
  - CEREBRAL INFARCTION [None]
  - INTERSTITIAL LUNG DISEASE [None]
  - MALABSORPTION [None]
  - HYPOAESTHESIA [None]
  - HYPOGLYCAEMIA [None]
  - PANCREATITIS CHRONIC [None]
